FAERS Safety Report 10135865 (Version 1)
Quarter: 2014Q2

REPORT INFORMATION
  Report Type: Report from Study
  Country: US (occurrence: US)
  Receive Date: 20140429
  Receipt Date: 20140429
  Transmission Date: 20141212
  Serious: Yes (Other)
  Sender: FDA-Public Use
  Company Number: US-ROCHE-1389310

PATIENT
  Age: 65 Year
  Sex: Female
  Weight: 88.53 kg

DRUGS (4)
  1. HERCEPTIN [Suspect]
     Indication: BREAST CANCER
     Route: 042
     Dates: start: 20131231
  2. PERJETA [Suspect]
     Indication: BREAST CANCER
     Route: 065
     Dates: start: 20131231
  3. TAXOTERE [Concomitant]
     Route: 065
  4. LASIX [Concomitant]
     Route: 048
     Dates: start: 201401

REACTIONS (5)
  - Dyspnoea [Recovering/Resolving]
  - Diarrhoea [Not Recovered/Not Resolved]
  - Nausea [Recovering/Resolving]
  - Blood urea increased [Recovered/Resolved]
  - Blood creatinine increased [Recovered/Resolved]
